FAERS Safety Report 6156153-0 (Version None)
Quarter: 2009Q2

REPORT INFORMATION
  Report Type: 
  Country: None (occurrence: None)
  Receive Date: 20090413
  Receipt Date: 20090413
  Transmission Date: 20091009
  Serious: Yes (Other)
  Sender: FDA-Public Use
  Company Number: None

PATIENT
  Age: 31 Year
  Sex: Female
  Weight: 58.9676 kg

DRUGS (1)
  1. LUPRON [Suspect]
     Indication: ENDOMETRIOSIS
     Dosage: 3.75 MONTHLY IM
     Route: 030
     Dates: start: 20081003, end: 20090214

REACTIONS (5)
  - CHEST PAIN [None]
  - DISCOMFORT [None]
  - FEAR [None]
  - FRUSTRATION [None]
  - PELVIC PAIN [None]
